FAERS Safety Report 6875534-0 (Version None)
Quarter: 2010Q3

REPORT INFORMATION
  Report Type: 
  Country: None (occurrence: None)
  Receive Date: 20100727
  Receipt Date: 20100716
  Transmission Date: 20110219
  Serious: Yes (Life-Threatening, Hospitalization)
  Sender: FDA-Public Use
  Company Number: JP-JNJFOC-20090905506

PATIENT
  Sex: Male
  Weight: 61 kg

DRUGS (10)
  1. REMICADE [Suspect]
     Indication: RHEUMATOID ARTHRITIS
     Dosage: 22ND INFUSION
     Route: 042
  2. REMICADE [Suspect]
     Dosage: 1ST INFUSION
     Route: 042
  3. REMICADE [Suspect]
     Dosage: 19 INFUSIONS ON UNSPECIFIED DATES
     Route: 042
  4. RHEUMATREX [Concomitant]
     Indication: RHEUMATOID ARTHRITIS
     Route: 048
  5. AZULFIDINE [Concomitant]
     Route: 048
  6. PREDONINE [Concomitant]
     Indication: RHEUMATOID ARTHRITIS
     Route: 048
  7. MUCOSTA [Concomitant]
     Indication: GASTRITIS
     Route: 048
  8. CLARITHROMYCIN [Concomitant]
     Indication: RESPIRATORY TRACT INFECTION
     Route: 048
  9. ZEPOLAS [Concomitant]
     Indication: RHEUMATOID ARTHRITIS
     Dosage: ROUTE: OD
  10. HYPEN [Concomitant]
     Indication: RHEUMATOID ARTHRITIS
     Route: 048

REACTIONS (2)
  - GASTRIC CANCER STAGE IV [None]
  - RIB FRACTURE [None]
